FAERS Safety Report 14665937 (Version 1)
Quarter: 2018Q1

REPORT INFORMATION
  Report Type: Spontaneous
  Country: US (occurrence: US)
  Receive Date: 20180320
  Receipt Date: 20180320
  Transmission Date: 20180509
  Serious: No
  Sender: FDA-Public Use
  Company Number: None

PATIENT
  Age: 53 Year
  Sex: Female
  Weight: 117.9 kg

DRUGS (5)
  1. CONTRAVE [Suspect]
     Active Substance: BUPROPION HYDROCHLORIDE\NALTREXONE HYDROCHLORIDE
     Indication: FOOD CRAVING
     Route: 048
  2. BENTYL [Concomitant]
     Active Substance: DICYCLOMINE HYDROCHLORIDE
  3. HYDROXYZINE [Concomitant]
     Active Substance: HYDROXYZINE HYDROCHLORIDE
  4. EFFEXOR [Concomitant]
     Active Substance: VENLAFAXINE HYDROCHLORIDE
  5. SLOW FE IRON SUPPLEMENT [Concomitant]

REACTIONS (3)
  - Tongue disorder [None]
  - Eating disorder [None]
  - Dry mouth [None]

NARRATIVE: CASE EVENT DATE: 20170815
